FAERS Safety Report 12439304 (Version 1)
Quarter: 2016Q2

REPORT INFORMATION
  Report Type: Other
  Country: US (occurrence: US)
  Receive Date: 20160606
  Receipt Date: 20160606
  Transmission Date: 20160815
  Serious: Yes (Other)
  Sender: FDA-Public Use
  Company Number: US-COL_23049_2016

PATIENT
  Sex: Male

DRUGS (2)
  1. SPEED STICK DEODORANT CLEAR ACTIVE FRESH [Suspect]
     Active Substance: COSMETICS
     Dosage: ONE SWIPE UNDER EACH ARM/ONCE A DAY/
     Route: 061
     Dates: start: 2016
  2. SPEED STICK DEODORANT CLEAR ACTIVE FRESH [Suspect]
     Active Substance: COSMETICS
     Indication: SKIN ODOUR ABNORMAL
     Dosage: ONE SWIPE UNDER EACH ARM/ONCE A DAY/
     Route: 061
     Dates: start: 201603, end: 20160414

REACTIONS (5)
  - Application site rash [Not Recovered/Not Resolved]
  - Application site infection [Not Recovered/Not Resolved]
  - Activities of daily living impaired [Unknown]
  - Application site irritation [Not Recovered/Not Resolved]
  - Application site pain [Not Recovered/Not Resolved]

NARRATIVE: CASE EVENT DATE: 2016
